FAERS Safety Report 10784439 (Version 1)
Quarter: 2015Q1

REPORT INFORMATION
  Report Type: Spontaneous
  Country: KP (occurrence: KP)
  Receive Date: 20150211
  Receipt Date: 20150211
  Transmission Date: 20150721
  Serious: Yes (Death)
  Sender: FDA-Public Use
  Company Number: KP-CIPLA LTD.-2015KP01164

PATIENT

DRUGS (5)
  1. ETOPOSIDE. [Suspect]
     Active Substance: ETOPOSIDE
     Indication: NON-SMALL CELL LUNG CANCER STAGE III
     Dosage: 50 MG/M2/DAY ON DAYS 1 TO 5 AND 29 TO 33
  2. RADIOTHERAPY [Suspect]
     Active Substance: RADIATION THERAPY
     Indication: NON-SMALL CELL LUNG CANCER STAGE III
     Dosage: 66 GY ON DAYS 1 TO 5 AND 29 TO 33
  3. CISPLATIN. [Suspect]
     Active Substance: CISPLATIN
     Dosage: 50 MG/M2/DAY ON DAY 1, 8, 29 AND 36
     Route: 042
  4. IRINOTECAN [Suspect]
     Active Substance: IRINOTECAN
     Indication: NON-SMALL CELL LUNG CANCER STAGE III
     Dosage: TWO CYCLES OF 80 MG/M2 ON DAY 1 AND DAY 8 OF EACH CYCLE AT A 3-WEEK INTERVAL
     Route: 042
  5. CISPLATIN. [Suspect]
     Active Substance: CISPLATIN
     Indication: NON-SMALL CELL LUNG CANCER STAGE III
     Dosage: TWO CYCLES 40 MG/M2  ON DAY 1 AND DAY 8 OF EACH CYCLE AT A 3-WEEK INTERVAL
     Route: 042

REACTIONS (1)
  - Death [Fatal]
